FAERS Safety Report 9179754 (Version 2)
Quarter: 2013Q2

REPORT INFORMATION
  Report Type: Report from Study
  Country: CA (occurrence: CA)
  Receive Date: 20130321
  Receipt Date: 20130425
  Transmission Date: 20140414
  Serious: Yes (Hospitalization, Other)
  Sender: FDA-Public Use
  Company Number: PHHY2013CA026809

PATIENT
  Age: 33 Year
  Sex: Male

DRUGS (11)
  1. CLOZARIL [Suspect]
     Indication: SCHIZOPHRENIA, PARANOID TYPE
     Dosage: 25 MG (10 MG AT NOON AND 15 MG AT NIGHT)
     Route: 048
     Dates: start: 20000516, end: 20000925
  2. CLOZARIL [Suspect]
     Dosage: UNK
  3. CLONAZEPAM [Concomitant]
     Dosage: 1 MG (0.5 MG AT NOON AND 0.5 MG AT NIGHT)
     Route: 048
     Dates: start: 2001
  4. PROCYCLIDINE [Concomitant]
     Dosage: 5 MG (2.5 MG AT NOON AND 2.5 AT NIGHT)
     Dates: start: 2001
  5. VITAMIIN C [Concomitant]
     Dosage: 500 MG, DAILY
     Dates: start: 2001
  6. TOCOPHEROL [Concomitant]
     Dosage: 400 MG, BID
     Route: 048
     Dates: start: 2001
  7. QUETIAPINE [Concomitant]
     Dosage: 2 DF (200 MG IN THE MORNING AND 200 MG AT NIGHT)
     Dates: start: 2006
  8. EFFEXOR [Concomitant]
     Dosage: UNK UKN, BID
     Dates: start: 2006
  9. PIMOZIDE [Concomitant]
  10. CHLORPROMAZINE [Concomitant]
     Dosage: UNK UKN, UNK
     Dates: end: 200101
  11. RISPERIDONE [Concomitant]

REACTIONS (22)
  - Substance-induced psychotic disorder [Unknown]
  - Delusion [Unknown]
  - Drug ineffective [Unknown]
  - Blepharospasm [Unknown]
  - Poverty of thought content [Unknown]
  - Drug abuse [Unknown]
  - Feeling abnormal [Unknown]
  - Self-injurious ideation [Unknown]
  - Fear of crowded places [Unknown]
  - Borderline personality disorder [Unknown]
  - Antisocial personality disorder [Unknown]
  - Paranoia [Unknown]
  - Disturbance in attention [Unknown]
  - Granulocytopenia [Unknown]
  - Hallucination, visual [Unknown]
  - Hallucination, auditory [Unknown]
  - Anger [Unknown]
  - Depressed mood [Unknown]
  - Belligerence [Unknown]
  - Anxiety [Unknown]
  - Boredom [Unknown]
  - Fatigue [Unknown]
